FAERS Safety Report 14178114 (Version 4)
Quarter: 2023Q2

REPORT INFORMATION
  Report Type: Report from Study
  Country: CA (occurrence: CA)
  Receive Date: 20171110
  Receipt Date: 20230413
  Transmission Date: 20230722
  Serious: Yes (Other)
  Sender: FDA-Public Use
  Company Number: CA-JNJFOC-20171110605

PATIENT
  Age: 14 Year
  Sex: Male
  Weight: 59 kg

DRUGS (2)
  1. REMICADE [Suspect]
     Active Substance: INFLIXIMAB
     Indication: Colitis ulcerative
     Dosage: PREVIOUSLY REPORTED AS 450 MG ONCE EVERY 6 WEEKS.
     Route: 042
     Dates: start: 20140524
  2. REMICADE [Suspect]
     Active Substance: INFLIXIMAB
     Dosage: PATIENT MISSED APPOINTMENT OF 15-MAR-2023 AND REBOOKED ON 14-APR-2023
     Route: 042

REACTIONS (6)
  - Rectal haemorrhage [Not Recovered/Not Resolved]
  - Drug level below therapeutic [Unknown]
  - Therapeutic response decreased [Unknown]
  - Product dose omission issue [Unknown]
  - Off label use [Unknown]
  - Product use issue [Unknown]

NARRATIVE: CASE EVENT DATE: 20140524
